FAERS Safety Report 8608568-6 (Version None)
Quarter: 2012Q3

REPORT INFORMATION
  Report Type: 
  Country: None (occurrence: None)
  Receive Date: 20120821
  Receipt Date: 20120815
  Transmission Date: 20120928
  Serious: Yes (Other)
  Sender: FDA-Public Use
  Company Number: US-PFIZER INC-2012200015

PATIENT
  Age: 63 Year
  Sex: Female
  Weight: 71.655 kg

DRUGS (2)
  1. DEPAKOTE [Concomitant]
     Indication: BIPOLAR DISORDER
     Dosage: UNK, 2X/DAY
  2. LATANOPROST [Suspect]
     Indication: GLAUCOMA
     Dosage: ONE DROP IN EACH EYE, 1X/DAY
     Route: 047

REACTIONS (3)
  - ANAESTHETIC COMPLICATION [None]
  - INTERVERTEBRAL DISC PROTRUSION [None]
  - PAIN [None]
